FAERS Safety Report 7054212-1 (Version None)
Quarter: 2010Q4

REPORT INFORMATION
  Report Type: 
  Country: None (occurrence: None)
  Receive Date: 20101020
  Receipt Date: 20101005
  Transmission Date: 20110411
  Serious: Yes (Disabling, Other)
  Sender: FDA-Public Use
  Company Number: PHHY2010CL65998

PATIENT
  Age: 83 Year
  Sex: Male

DRUGS (3)
  1. TAREG D [Suspect]
     Dosage: 1 TABLET (160/12.5 MG) PER DAY
  2. GLIBENCLAMIDE [Concomitant]
  3. METFORMIN HCL [Concomitant]

REACTIONS (2)
  - FOOT OPERATION [None]
  - TOE AMPUTATION [None]
